FAERS Safety Report 16430280 (Version 1)
Quarter: 2019Q2

REPORT INFORMATION
  Report Type: Spontaneous
  Country: PT (occurrence: PT)
  Receive Date: 20190614
  Receipt Date: 20190614
  Transmission Date: 20190711
  Serious: Yes (Life-Threatening, Hospitalization, Other)
  Sender: FDA-Public Use
  Company Number: PT-ACCORD-132413

PATIENT
  Age: 38 Year
  Sex: Female

DRUGS (10)
  1. NOREPINEPHRINE. [Suspect]
     Active Substance: NOREPINEPHRINE
     Dosage: UNK
  2. ALPRAZOLAM. [Suspect]
     Active Substance: ALPRAZOLAM
     Indication: PRODUCT USED FOR UNKNOWN INDICATION
     Dosage: 9 G, UNK
     Route: 065
  3. QUETIAPINE. [Suspect]
     Active Substance: QUETIAPINE
     Dosage: 9 G, UNK, 800 MG ALSO RECEIVED (800 MG, QD)
     Route: 065
  4. PARACETAMOL [Suspect]
     Active Substance: ACETAMINOPHEN
     Dosage: 15 G, 5 GRAM ALSO RECEIVED
     Route: 065
  5. PRACET [Suspect]
     Active Substance: VENLAFAXINE HYDROCHLORIDE
     Dosage: 3 G, UNK
     Route: 065
  6. ALPRAZOLAM. [Suspect]
     Active Substance: ALPRAZOLAM
     Indication: PRODUCT USED FOR UNKNOWN INDICATION
     Dosage: 40 MG, UNK
     Route: 065
  7. CODEINE [Suspect]
     Active Substance: CODEINE
     Dosage: 900 MG, UNK, 300 MG, ONCE DAILY (QD)
     Route: 048
  8. AMOXICILLIN/CLAVULANIC ACID [Suspect]
     Active Substance: AMOXICILLIN\CLAVULANIC ACID
     Dosage: UNKNOWN DOSE
  9. ALPRAZOLAM. [Suspect]
     Active Substance: ALPRAZOLAM
     Dosage: 16 MG, QD, 9 GRAM, 20 MG , 40 MG  ALSO RECEIVED
     Route: 065
  10. QUETIAPINE. [Suspect]
     Active Substance: QUETIAPINE
     Indication: PRODUCT USED FOR UNKNOWN INDICATION
     Dosage: 800 MG, QD
     Route: 065

REACTIONS (22)
  - Staphylococcal infection [Unknown]
  - Nervous system disorder [Recovered/Resolved]
  - Drug abuse [Recovered/Resolved]
  - Intentional overdose [Unknown]
  - Acute kidney injury [Recovering/Resolving]
  - Hydronephrosis [Unknown]
  - Depressed mood [Unknown]
  - Coma [Recovered/Resolved]
  - Cardiovascular disorder [Unknown]
  - Vocal cord paralysis [Unknown]
  - Delirium [Unknown]
  - Liver injury [Recovering/Resolving]
  - Normochromic normocytic anaemia [Unknown]
  - Renal papillary necrosis [Recovering/Resolving]
  - Respiratory disorder [Recovered/Resolved]
  - Pneumonia [Unknown]
  - Multiple organ dysfunction syndrome [Recovered/Resolved]
  - Hepatic function abnormal [Recovered/Resolved]
  - Agitation [Unknown]
  - Distributive shock [Recovered/Resolved]
  - Cholestasis [Recovering/Resolving]
  - Anuria [Recovering/Resolving]
